FAERS Safety Report 7882759-4 (Version None)
Quarter: 2011Q4

REPORT INFORMATION
  Report Type: 
  Country: None (occurrence: None)
  Receive Date: 20111101
  Receipt Date: 20110620
  Transmission Date: 20120403
  Serious: No
  Sender: FDA-Public Use
  Company Number: US-AMGEN-USASP2011031516

PATIENT
  Age: 55 Year
  Sex: Female

DRUGS (2)
  1. ENBREL [Suspect]
     Indication: RHEUMATOID ARTHRITIS
     Dosage: 25 MG, 2 TIMES/WK
     Dates: start: 20030114, end: 20110606
  2. ARAVA [Concomitant]
     Dosage: 1 MG, QD
     Dates: start: 20030101

REACTIONS (2)
  - RHEUMATOID NODULE [None]
  - RHEUMATOID ARTHRITIS [None]
